FAERS Safety Report 10523775 (Version 1)
Quarter: 2014Q4

REPORT INFORMATION
  Report Type: Spontaneous
  Country: US (occurrence: None)
  Receive Date: 20141015
  Receipt Date: 20141015
  Transmission Date: 20150528
  Serious: Yes (Hospitalization)
  Sender: FDA-Public Use
  Company Number: None

PATIENT
  Age: 73 Year
  Sex: Male
  Weight: 104.78 kg

DRUGS (1)
  1. PROPAFENONE. [Suspect]
     Active Substance: PROPAFENONE
     Indication: ATRIAL FIBRILLATION
     Dosage: 3 PILLS EVERY 8 HOURS
     Route: 048
     Dates: start: 20140623, end: 20140808

REACTIONS (3)
  - Laziness [None]
  - Decreased appetite [None]
  - Haematemesis [None]

NARRATIVE: CASE EVENT DATE: 20140721
